FAERS Safety Report 17674794 (Version 1)
Quarter: 2020Q2

REPORT INFORMATION
  Report Type: Spontaneous
  Country: CN (occurrence: CN)
  Receive Date: 20200416
  Receipt Date: 20200416
  Transmission Date: 20200714
  Serious: Yes (Other)
  Sender: FDA-Public Use
  Company Number: CN-ROCHE-2582047

PATIENT
  Age: 53 Year
  Sex: Male
  Weight: 83 kg

DRUGS (15)
  1. AVASTIN [Suspect]
     Active Substance: BEVACIZUMAB
     Indication: RECTAL CANCER
     Dosage: 3 CYCLES
     Route: 065
     Dates: start: 20180914, end: 20181029
  2. XELODA [Suspect]
     Active Substance: CAPECITABINE
     Indication: METASTASES TO LUNG
  3. AVASTIN [Suspect]
     Active Substance: BEVACIZUMAB
     Dosage: 2 CYCLES
     Route: 065
     Dates: start: 20190325, end: 20190509
  4. CALCIUM FOLINATE [Concomitant]
     Active Substance: LEUCOVORIN CALCIUM
     Dosage: FOLFOX REGIMEN 4 CYCLES
     Route: 065
     Dates: start: 20180914, end: 20181029
  5. CALCIUM FOLINATE [Concomitant]
     Active Substance: LEUCOVORIN CALCIUM
     Dosage: FOLFOX REGIMEN 2 CYCLES
     Route: 065
     Dates: start: 20190325, end: 20190509
  6. OXALIPLATIN. [Concomitant]
     Active Substance: OXALIPLATIN
     Dosage: FOLFOX REGIMEN 2 CYCLES
     Route: 065
     Dates: start: 20190325, end: 20190509
  7. AVASTIN [Suspect]
     Active Substance: BEVACIZUMAB
     Dosage: 5 CYCLES
     Route: 065
     Dates: start: 20190509, end: 20191111
  8. AVASTIN [Suspect]
     Active Substance: BEVACIZUMAB
     Dosage: 4 CYCLES
     Route: 065
     Dates: start: 20181217, end: 20190211
  9. FLUOROURACIL. [Concomitant]
     Active Substance: FLUOROURACIL
     Dosage: FOLFOX REGIMEN 2 CYCLES
     Route: 065
     Dates: start: 20190325, end: 20190509
  10. OXALIPLATIN. [Concomitant]
     Active Substance: OXALIPLATIN
     Dosage: FOLFOX REGIMEN 4 CYCLES
     Route: 065
     Dates: start: 20181217, end: 20190211
  11. XELODA [Suspect]
     Active Substance: CAPECITABINE
     Indication: RECTAL CANCER
     Dosage: 5 CYCLES
     Route: 048
     Dates: start: 20190509, end: 20191111
  12. FLUOROURACIL. [Concomitant]
     Active Substance: FLUOROURACIL
     Dosage: FOLFOX REGIMEN 4 CYCLES
     Route: 065
     Dates: start: 20181217, end: 20190211
  13. FLUOROURACIL. [Concomitant]
     Active Substance: FLUOROURACIL
     Dosage: FOLFOX REGIMEN 4 CYCLES
     Route: 065
     Dates: start: 20180914, end: 20181029
  14. CALCIUM FOLINATE [Concomitant]
     Active Substance: LEUCOVORIN CALCIUM
     Dosage: FOLFOX REGIMEN 4 CYCLES
     Route: 065
     Dates: start: 20181217, end: 20190211
  15. OXALIPLATIN. [Concomitant]
     Active Substance: OXALIPLATIN
     Dosage: FOLFOX REGIMEN 4 CYCLES
     Route: 065
     Dates: start: 20180914, end: 20181029

REACTIONS (4)
  - Neurotoxicity [Unknown]
  - Anastomotic leak [Unknown]
  - Bone marrow failure [Unknown]
  - Palmar-plantar erythrodysaesthesia syndrome [Unknown]
